FAERS Safety Report 5379683-8 (Version None)
Quarter: 2007Q3

REPORT INFORMATION
  Report Type: 
  Country: None (occurrence: None)
  Receive Date: 20070706
  Receipt Date: 20070629
  Transmission Date: 20080115
  Serious: Yes (Hospitalization)
  Sender: FDA-Public Use
  Company Number: PHEH2007US06841

PATIENT
  Age: 82 Year
  Sex: Female

DRUGS (7)
  1. ZELNORM [Suspect]
     Indication: IRRITABLE BOWEL SYNDROME
     Dosage: 6 MG, BID
     Route: 048
     Dates: start: 20060101
  2. SYNTHROID [Concomitant]
     Route: 048
  3. NEXIUM [Concomitant]
     Route: 048
  4. TOPROL-XL [Concomitant]
     Route: 048
  5. LEXAPRO [Concomitant]
     Route: 048
  6. FORTEO [Concomitant]
     Route: 058
  7. COUMADIN [Concomitant]
     Route: 048

REACTIONS (6)
  - ATRIAL FIBRILLATION [None]
  - CARDIAC FAILURE CONGESTIVE [None]
  - DISEASE PROGRESSION [None]
  - DYSPNOEA [None]
  - GENERALISED OEDEMA [None]
  - PULMONARY OEDEMA [None]
